FAERS Safety Report 13052469 (Version 1)
Quarter: 2016Q4

REPORT INFORMATION
  Report Type: Spontaneous
  Country: DK (occurrence: DK)
  Receive Date: 20161221
  Receipt Date: 20161221
  Transmission Date: 20170207
  Serious: Yes (Other)
  Sender: FDA-Public Use
  Company Number: DK-009507513-1612DNK008622

PATIENT
  Age: 42 Year
  Sex: Male

DRUGS (6)
  1. NOXAFIL [Suspect]
     Active Substance: POSACONAZOLE
     Indication: MUCORMYCOSIS
     Dosage: UNK
     Route: 048
     Dates: start: 2016
  2. NOXAFIL [Suspect]
     Active Substance: POSACONAZOLE
     Indication: MUCORMYCOSIS
     Dosage: 2 X 200MG
     Route: 048
     Dates: start: 2016
  3. POSACONAZOLE [Suspect]
     Active Substance: POSACONAZOLE
     Indication: MUCORMYCOSIS
     Dosage: 450 MG, QD
     Route: 042
     Dates: start: 2016
  4. AMBISOME [Concomitant]
     Active Substance: AMPHOTERICIN B
  5. POSACONAZOLE [Suspect]
     Active Substance: POSACONAZOLE
     Dosage: 300 MG, QD
     Route: 042
     Dates: start: 2016
  6. POSACONAZOLE [Suspect]
     Active Substance: POSACONAZOLE
     Dosage: 400 MG, QD
     Route: 042
     Dates: start: 2016

REACTIONS (8)
  - Gastrointestinal disorder [Unknown]
  - Drug level above therapeutic [Recovered/Resolved]
  - Dialysis [Not Recovered/Not Resolved]
  - Gastrointestinal tube insertion [Unknown]
  - Blood alkaline phosphatase increased [Unknown]
  - Drug level below therapeutic [Unknown]
  - Overdose [Unknown]
  - Drug level below therapeutic [Recovered/Resolved]

NARRATIVE: CASE EVENT DATE: 2016
